FAERS Safety Report 20952037 (Version 1)
Quarter: 2022Q2

REPORT INFORMATION
  Report Type: Spontaneous
  Country: US (occurrence: US)
  Receive Date: 20220613
  Receipt Date: 20220613
  Transmission Date: 20220721
  Serious: No
  Sender: FDA-Public Use
  Company Number: US-PFIZER INC-202200827712

PATIENT
  Age: 71 Year

DRUGS (1)
  1. ESTROGENS, ESTERIFIED [Suspect]
     Active Substance: ESTROGENS, ESTERIFIED
     Dosage: UNK

REACTIONS (1)
  - Urinary tract infection [Unknown]
